FAERS Safety Report 15807004 (Version 1)
Quarter: 2019Q1

REPORT INFORMATION
  Report Type: Spontaneous
  Country: US (occurrence: US)
  Receive Date: 20190110
  Receipt Date: 20190110
  Transmission Date: 20190417
  Serious: No
  Sender: FDA-Public Use
  Company Number: US-MYLANLABS-2019M1000253

PATIENT

DRUGS (3)
  1. CLONIDINE. [Concomitant]
     Active Substance: CLONIDINE
     Indication: HYPERTENSION
     Dosage: UNK
  2. CLONIDINE. [Suspect]
     Active Substance: CLONIDINE
     Indication: HYPERTENSION
     Dosage: 1 DOSAGE FORM
     Route: 062
  3. AMILORIDE [Concomitant]
     Active Substance: AMILORIDE
     Indication: DIURETIC THERAPY
     Dosage: UNK UNK, QD
     Route: 048

REACTIONS (2)
  - Drug ineffective [Unknown]
  - Product adhesion issue [Unknown]
